FAERS Safety Report 5124070-0 (Version None)
Quarter: 2006Q4

REPORT INFORMATION
  Report Type: 
  Country: None (occurrence: None)
  Receive Date: 20061010
  Receipt Date: 20051021
  Transmission Date: 20070319
  Serious: No
  Sender: FDA-Public Use
  Company Number: US-BRISTOL-MYERS SQUIBB COMPANY-13155676

PATIENT
  Age: 59 Year
  Sex: Female

DRUGS (4)
  1. AVAPRO [Suspect]
     Indication: HYPERTENSION
     Route: 048
     Dates: start: 20040101
  2. EVISTA [Suspect]
     Route: 048
     Dates: start: 20010101
  3. OXYTROL [Suspect]
     Indication: HYPERTONIC BLADDER
     Route: 062
     Dates: start: 20030901
  4. WELLBUTRIN [Suspect]
     Indication: DEPRESSION
     Route: 048
     Dates: start: 20040101

REACTIONS (1)
  - ALOPECIA [None]
